FAERS Safety Report 5281664-X (Version None)
Quarter: 2007Q1

REPORT INFORMATION
  Report Type: 
  Country: None (occurrence: None)
  Receive Date: 20070326
  Receipt Date: 20070321
  Transmission Date: 20070707
  Serious: Yes (Other)
  Sender: FDA-Public Use
  Company Number: T06-GER-02691-00

PATIENT
  Age: 19 Year
  Sex: Male

DRUGS (5)
  1. ESCITALOPRAM (UNBLINDED) (ESCITALOPRAM) [Suspect]
     Indication: DEPRESSION
     Dosage: 10 MG QD PO
     Route: 048
     Dates: start: 20060301, end: 20060428
  2. ESCITALOPRAM (UNBLINDED) (ESCITALOPRAM) [Suspect]
     Indication: PROPHYLAXIS
     Dosage: 10 MG QD PO
     Route: 048
     Dates: start: 20060301, end: 20060428
  3. PEGASYS [Suspect]
     Indication: HEPATITIS C VIRUS
     Dosage: 180MCG QW SC
     Route: 058
     Dates: start: 20060317, end: 20060428
  4. RIBAVIRIN [Concomitant]
  5. PARACETAMOL [Concomitant]

REACTIONS (7)
  - AFFECT LABILITY [None]
  - AGGRESSION [None]
  - AGITATION [None]
  - DEPRESSION [None]
  - FALL [None]
  - IMPULSE-CONTROL DISORDER [None]
  - INTENTIONAL SELF-INJURY [None]
